FAERS Safety Report 16347436 (Version 1)
Quarter: 2019Q3

REPORT INFORMATION
  Report Type: Spontaneous
  Country: US (occurrence: US)
  Receive Date: 20190522
  Receipt Date: 20190522
  Transmission Date: 20191004
  Serious: Yes (Hospitalization)
  Sender: FDA-Public Use
  Company Number: None

PATIENT
  Sex: Female

DRUGS (12)
  1. LOSARTAN. [Concomitant]
     Active Substance: LOSARTAN
  2. METOPROLOL SUC [Concomitant]
  3. STOOL SOFTENER (DOCUSATE) [Concomitant]
     Active Substance: DOCUSATE
  4. SILDENAFIL. [Suspect]
     Active Substance: SILDENAFIL
     Indication: PULMONARY ARTERIAL HYPERTENSION
     Dosage: FREQUENCY: OTHER-UNK?ROUTE: UNKNOWN?OTHER FREQUENCY:UNK;?
  5. HYDRALAZINE [Concomitant]
     Active Substance: HYDRALAZINE HYDROCHLORIDE
  6. ALLOPURINOL. [Concomitant]
     Active Substance: ALLOPURINOL
  7. DIGOX [Concomitant]
     Active Substance: DIGOXIN
  8. ELIQUIS [Concomitant]
     Active Substance: APIXABAN
  9. DOK [Concomitant]
     Active Substance: DOCUSATE SODIUM
  10. CLOPIDOGREL [Concomitant]
     Active Substance: CLOPIDOGREL BISULFATE
  11. ATORVASTATIN [Concomitant]
     Active Substance: ATORVASTATIN
  12. ISOSORBIDE. [Concomitant]
     Active Substance: ISOSORBIDE

REACTIONS (1)
  - Hospitalisation [None]
